FAERS Safety Report 7444377-1 (Version None)
Quarter: 2011Q2

REPORT INFORMATION
  Report Type: 
  Country: None (occurrence: None)
  Receive Date: 20110427
  Receipt Date: 20110427
  Transmission Date: 20111010
  Serious: Yes (Other)
  Sender: FDA-Public Use
  Company Number: None

PATIENT
  Sex: Male
  Weight: 86.1834 kg

DRUGS (4)
  1. VIT D [Concomitant]
  2. ULORIC [Suspect]
     Indication: GOUT
     Dosage: 40 MG ONCE DAILY PO
     Route: 048
     Dates: start: 20100201, end: 20101130
  3. ULORIC [Suspect]
     Indication: GOUT
     Dosage: 40 MG ONCE DAILY PO
     Route: 048
     Dates: start: 20110125, end: 20110201
  4. WARFARIN [Concomitant]

REACTIONS (1)
  - CEREBROVASCULAR ACCIDENT [None]
